FAERS Safety Report 7921055-3 (Version None)
Quarter: 2011Q4

REPORT INFORMATION
  Report Type: 
  Country: None (occurrence: None)
  Receive Date: 20111117
  Receipt Date: 20111114
  Transmission Date: 20120403
  Serious: Yes (Hospitalization, Disabling, Other)
  Sender: FDA-Public Use
  Company Number: US-MERCK-1102USA01523

PATIENT
  Age: 57 Year
  Sex: Female
  Weight: 125 kg

DRUGS (8)
  1. FOSAMAX [Suspect]
     Indication: OSTEOPOROSIS
     Route: 048
     Dates: start: 19950101, end: 20090101
  2. VITAMIN D (UNSPECIFIED) [Concomitant]
     Route: 048
  3. CALCIUM (UNSPECIFIED) [Concomitant]
     Route: 048
  4. DICLOFENAC [Concomitant]
     Indication: INFLAMMATION
     Route: 048
  5. DICLOFENAC [Concomitant]
     Indication: ARTHRITIS
     Route: 048
  6. PREDNISONE [Concomitant]
     Indication: ARTHRITIS
     Route: 048
  7. [THERAPY UNSPECIFIED] [Concomitant]
     Indication: HYPERCHOLESTEROLAEMIA
     Route: 048
     Dates: start: 20030101
  8. ASCORBIC ACID [Concomitant]
     Route: 048

REACTIONS (39)
  - FEMUR FRACTURE [None]
  - BLINDNESS [None]
  - HEPATIC LESION [None]
  - DEVICE FAILURE [None]
  - OBESITY [None]
  - RENAL FAILURE CHRONIC [None]
  - ABDOMINAL PAIN [None]
  - SWELLING [None]
  - SEASONAL ALLERGY [None]
  - RESTLESS LEGS SYNDROME [None]
  - LIMB DEFORMITY [None]
  - OEDEMA PERIPHERAL [None]
  - LOW TURNOVER OSTEOPATHY [None]
  - ADVERSE EVENT [None]
  - CHOLELITHIASIS [None]
  - ORAL HERPES [None]
  - SOFT TISSUE DISORDER [None]
  - OSTEOARTHRITIS [None]
  - INTERVERTEBRAL DISC DEGENERATION [None]
  - JOINT SWELLING [None]
  - WOUND INFECTION STAPHYLOCOCCAL [None]
  - HYPOAESTHESIA [None]
  - NEUROPATHY PERIPHERAL [None]
  - FALL [None]
  - WOUND [None]
  - HYPERTENSION [None]
  - CONSTIPATION [None]
  - FIBROMYALGIA [None]
  - SLEEP APNOEA SYNDROME [None]
  - LYMPHADENOPATHY [None]
  - CHOLECYSTITIS [None]
  - ARTHROPATHY [None]
  - FRACTURE NONUNION [None]
  - MACULAR DEGENERATION [None]
  - PATELLA FRACTURE [None]
  - DEPRESSION [None]
  - DIZZINESS [None]
  - SKIN DISORDER [None]
  - CELLULITIS [None]
